FAERS Safety Report 23049175 (Version 1)
Quarter: 2023Q4

REPORT INFORMATION
  Report Type: Spontaneous
  Country: US (occurrence: US)
  Receive Date: 20231010
  Receipt Date: 20231010
  Transmission Date: 20240110
  Serious: No
  Sender: FDA-Public Use
  Company Number: US-CADILA HEALTHCARE LIMITED-US-ZYDUS-095562

PATIENT

DRUGS (1)
  1. LENALIDOMIDE [Suspect]
     Active Substance: LENALIDOMIDE
     Indication: Diffuse large B-cell lymphoma
     Dosage: 15 MILLIGRAM, QD
     Route: 048
     Dates: start: 202306

REACTIONS (2)
  - Leukocytosis [Unknown]
  - Product use in unapproved indication [Not Recovered/Not Resolved]

NARRATIVE: CASE EVENT DATE: 20230601
